FAERS Safety Report 15034216 (Version 2)
Quarter: 2018Q3

REPORT INFORMATION
  Report Type: Report from Study
  Country: US (occurrence: US)
  Receive Date: 20180620
  Receipt Date: 20180703
  Transmission Date: 20181010
  Serious: No
  Sender: FDA-Public Use
  Company Number: US-AMGEN-USASP2018081604

PATIENT
  Age: 73 Year
  Sex: Female

DRUGS (4)
  1. GABAPENTIN. [Concomitant]
     Active Substance: GABAPENTIN
     Dosage: 600 MG, QD
  2. DULOXETINE. [Concomitant]
     Active Substance: DULOXETINE
     Dosage: 60 MG, UNK
  3. ADVIL [Concomitant]
     Active Substance: IBUPROFEN
  4. ENBREL [Suspect]
     Active Substance: ETANERCEPT
     Indication: RHEUMATOID ARTHRITIS
     Dosage: 50 MG, QWK
     Route: 065
     Dates: start: 20180612

REACTIONS (18)
  - Asthenia [Unknown]
  - Dizziness [Unknown]
  - Disorientation [Unknown]
  - Hypoaesthesia [Unknown]
  - Fatigue [Unknown]
  - Loss of personal independence in daily activities [Unknown]
  - Feeling abnormal [Unknown]
  - Tachycardia [Unknown]
  - Somnolence [Unknown]
  - Pyrexia [Unknown]
  - Laziness [Unknown]
  - Chills [Unknown]
  - Injection site pruritus [Unknown]
  - Limb discomfort [Unknown]
  - Injection site erythema [Unknown]
  - Injection site swelling [Unknown]
  - Impaired work ability [Unknown]
  - Balance disorder [Unknown]

NARRATIVE: CASE EVENT DATE: 201806
